FAERS Safety Report 6361758-8 (Version None)
Quarter: 2009Q3

REPORT INFORMATION
  Report Type: 
  Country: None (occurrence: None)
  Receive Date: 20090918
  Receipt Date: 20090917
  Transmission Date: 20100115
  Serious: Yes (Other)
  Sender: FDA-Public Use
  Company Number: US-BRISTOL-MYERS SQUIBB COMPANY-14783583

PATIENT
  Age: 69 Year
  Sex: Female
  Weight: 60 kg

DRUGS (11)
  1. ORENCIA [Suspect]
     Indication: POLYARTHRITIS
     Dosage: ALSO RECEIVED ON 05JUL09 (2ND INFUSION)
     Dates: start: 20090522
  2. SIMVASTATIN [Concomitant]
  3. ASPIRIN [Concomitant]
  4. METOPROLOL TARTRATE [Concomitant]
  5. CYMBALTA [Concomitant]
  6. LEFLUNOMIDE [Concomitant]
  7. GABAPENTIN [Concomitant]
  8. TRAMADOL HCL [Concomitant]
  9. HYDROCHLOROTHIAZIDE [Concomitant]
  10. NEXIUM [Concomitant]
  11. POTASSIUM CHLORIDE [Concomitant]

REACTIONS (2)
  - APHTHOUS STOMATITIS [None]
  - TONGUE ULCERATION [None]
